FAERS Safety Report 16001548 (Version 5)
Quarter: 2019Q3

REPORT INFORMATION
  Report Type: Spontaneous
  Country: CA (occurrence: CA)
  Receive Date: 20190225
  Receipt Date: 20190924
  Transmission Date: 20191004
  Serious: Yes (Other)
  Sender: FDA-Public Use
  Company Number: CA-PFIZER INC-2018522165

PATIENT
  Age: 80 Year
  Sex: Female

DRUGS (4)
  1. CICLESONIDE [Concomitant]
     Active Substance: CICLESONIDE
     Indication: NASAL DISORDER
     Dosage: UNK
  2. XELJANZ [Suspect]
     Active Substance: TOFACITINIB CITRATE
     Dosage: 5 MG, 2X/DAY (BID)
     Route: 048
     Dates: start: 20190208, end: 20190917
  3. METFORMIN [Concomitant]
     Active Substance: METFORMIN HYDROCHLORIDE
     Dosage: UNK
  4. XELJANZ [Suspect]
     Active Substance: TOFACITINIB CITRATE
     Indication: RHEUMATOID ARTHRITIS
     Dosage: 5 MG, 2X/DAY (BID)
     Route: 048

REACTIONS (8)
  - Post-traumatic neck syndrome [Unknown]
  - Clostridium difficile infection [Recovered/Resolved]
  - Therapeutic product effect incomplete [Recovering/Resolving]
  - Urinary tract infection bacterial [Unknown]
  - Fall [Unknown]
  - Gastrointestinal bacterial infection [Recovered/Resolved]
  - Abdominal discomfort [Unknown]
  - Pain [Unknown]

NARRATIVE: CASE EVENT DATE: 201806
